FAERS Safety Report 18155618 (Version 1)
Quarter: 2020Q3

REPORT INFORMATION
  Report Type: Spontaneous
  Country: US (occurrence: US)
  Receive Date: 20200816
  Receipt Date: 20200816
  Transmission Date: 20201103
  Serious: Yes (Disabling)
  Sender: FDA-Public Use
  Company Number: None

PATIENT
  Age: 19 Year
  Sex: Female
  Weight: 53.07 kg

DRUGS (1)
  1. NEXPLANON [Suspect]
     Active Substance: ETONOGESTREL

REACTIONS (6)
  - Back pain [None]
  - Insomnia [None]
  - Breast mass [None]
  - Depressed mood [None]
  - Sleep deficit [None]
  - Menstrual disorder [None]

NARRATIVE: CASE EVENT DATE: 20200402
